FAERS Safety Report 7978116-2 (Version None)
Quarter: 2011Q4

REPORT INFORMATION
  Report Type: 
  Country: None (occurrence: None)
  Receive Date: 20111212
  Receipt Date: 20111212
  Transmission Date: 20120403
  Serious: Yes (Hospitalization)
  Sender: FDA-Public Use
  Company Number: None

PATIENT
  Sex: Male
  Weight: 66.3 kg

DRUGS (4)
  1. CAMPATH [Suspect]
     Dosage: 60 MG
  2. PENTOSTATIN [Suspect]
     Dosage: 8 MG
  3. RITUXIMAB (MOAB C2B8 ANTI CD20, CHIMERIC) [Suspect]
     Dosage: 758 MG
  4. CYCLOPHOSPHAMIDE [Suspect]
     Dosage: 1212 MG

REACTIONS (7)
  - HYPOTENSION [None]
  - RESPIRATORY TRACT CONGESTION [None]
  - BRADYCARDIA [None]
  - ASPERGILLOSIS [None]
  - FUNGAL INFECTION [None]
  - BLOOD PRESSURE FLUCTUATION [None]
  - DEPRESSED LEVEL OF CONSCIOUSNESS [None]
